FAERS Safety Report 7262435-1 (Version None)
Quarter: 2011Q1

REPORT INFORMATION
  Report Type: 
  Country: None (occurrence: None)
  Receive Date: 20110130
  Receipt Date: 20101118
  Transmission Date: 20110831
  Serious: No
  Sender: FDA-Public Use
  Company Number: US-ABBOTT-10P-163-0686422-00

PATIENT
  Age: 73 Year
  Sex: Female

DRUGS (9)
  1. OSCAL [Concomitant]
     Indication: PRODUCT USED FOR UNKNOWN INDICATION
     Dosage: 500 MG/ D 200 IU
  2. FISH OIL [Concomitant]
     Indication: PRODUCT USED FOR UNKNOWN INDICATION
  3. HUMIRA [Suspect]
     Indication: PSORIATIC ARTHROPATHY
     Dates: start: 20100101
  4. GLUCOSAMINE + CHONDROITIN [Concomitant]
     Indication: PRODUCT USED FOR UNKNOWN INDICATION
  5. VITAMIN D [Concomitant]
     Indication: VITAMIN SUPPLEMENTATION
  6. VITAMIN E [Concomitant]
     Indication: VITAMIN SUPPLEMENTATION
  7. PROBIOTICS (3 TYPES OF CULTURES) [Concomitant]
     Indication: PRODUCT USED FOR UNKNOWN INDICATION
  8. EVISTA [Concomitant]
     Indication: OSTEOPOROSIS
  9. VITAMIN B-12 [Concomitant]
     Indication: PRODUCT USED FOR UNKNOWN INDICATION

REACTIONS (1)
  - ARTHRALGIA [None]
